FAERS Safety Report 13498260 (Version 2)
Quarter: 2017Q2

REPORT INFORMATION
  Report Type: Report from Study
  Country: None (occurrence: CA)
  Receive Date: 20170428
  Receipt Date: 20170619
  Transmission Date: 20170830
  Serious: Yes (Death, Hospitalization, Other)
  Sender: FDA-Public Use
  Company Number: CA-ABBVIE-17K-028-1958842-00

PATIENT
  Sex: Female

DRUGS (1)
  1. HUMIRA [Suspect]
     Active Substance: ADALIMUMAB
     Indication: CROHN^S DISEASE
     Route: 058
     Dates: start: 20120613

REACTIONS (8)
  - Septic shock [Fatal]
  - Staphylococcal bacteraemia [Fatal]
  - Pseudomonal bacteraemia [Fatal]
  - Peripheral T-cell lymphoma unspecified [Fatal]
  - Hypotension [Fatal]
  - Abdominal abscess [Fatal]
  - Crohn^s disease [Unknown]
  - Respiratory failure [Fatal]

NARRATIVE: CASE EVENT DATE: 2016
